FAERS Safety Report 14566645 (Version 2)
Quarter: 2018Q2

REPORT INFORMATION
  Report Type: Report from Study
  Country: DE (occurrence: DE)
  Receive Date: 20180223
  Receipt Date: 20180518
  Transmission Date: 20180711
  Serious: Yes (Life-Threatening, Hospitalization, Other)
  Sender: FDA-Public Use
  Company Number: DE-TEVA-2018-DE-859285

PATIENT
  Age: 65 Year
  Sex: Female
  Weight: 57 kg

DRUGS (19)
  1. DEXAMETHASONE. [Suspect]
     Active Substance: DEXAMETHASONE
     Dosage: 20 MILLIGRAM DAILY;
     Route: 065
     Dates: start: 20170925, end: 20170925
  2. DEXAMETHASONE. [Suspect]
     Active Substance: DEXAMETHASONE
     Dosage: 20 MILLIGRAM DAILY;
     Route: 065
     Dates: start: 20170904, end: 20170904
  3. CARFILZOMIB [Suspect]
     Active Substance: CARFILZOMIB
     Dosage: 20 MG/M2 DAILY;
     Route: 042
     Dates: start: 20170905, end: 20170905
  4. ACICLOVIR RATIOPHARM [Concomitant]
     Indication: PROPHYLAXIS
     Dosage: 400 MG, DALY
     Dates: start: 20170904
  5. DEXAMETHASONE. [Suspect]
     Active Substance: DEXAMETHASONE
     Dosage: 20 MILLIGRAM DAILY;
     Route: 065
     Dates: start: 20170919, end: 20170919
  6. DEXAMETHASONE. [Suspect]
     Active Substance: DEXAMETHASONE
     Dosage: 20 MILLIGRAM DAILY;
     Route: 065
     Dates: start: 20170918, end: 20170918
  7. CARFILZOMIB [Suspect]
     Active Substance: CARFILZOMIB
     Dosage: 56 MG/M2 DAILY;
     Route: 042
     Dates: start: 20170911, end: 20170911
  8. DEXAMETHASONE. [Suspect]
     Active Substance: DEXAMETHASONE
     Dosage: 20 MILLIGRAM DAILY;
     Route: 065
     Dates: start: 20171009, end: 20171009
  9. DEXAMETHASONE. [Suspect]
     Active Substance: DEXAMETHASONE
     Dosage: 20 MILLIGRAM DAILY;
     Route: 065
     Dates: start: 20170912, end: 20170912
  10. CARFILZOMIB [Suspect]
     Active Substance: CARFILZOMIB
     Dosage: 20 MG/M2 DAILY;
     Route: 042
     Dates: start: 20170904, end: 20170904
  11. ZOLPIDEM [Concomitant]
     Active Substance: ZOLPIDEM\ZOLPIDEM TARTRATE
     Indication: PROPHYLAXIS
     Dosage: 10 MG, AS NECESSARY
  12. DEXAMETHASONE. [Suspect]
     Active Substance: DEXAMETHASONE
     Dosage: 20 MILLIGRAM DAILY;
     Route: 065
     Dates: start: 20170926, end: 20170926
  13. CARFILZOMIB [Suspect]
     Active Substance: CARFILZOMIB
     Indication: PLASMA CELL MYELOMA
     Dosage: 45 MG/M2 DAILY;
     Route: 042
     Dates: start: 20171010, end: 20171010
  14. DEXAMETHASONE. [Suspect]
     Active Substance: DEXAMETHASONE
     Dosage: 20 MILLIGRAM DAILY;
     Route: 065
     Dates: start: 20170911, end: 20170911
  15. CARFILZOMIB [Suspect]
     Active Substance: CARFILZOMIB
     Dosage: 45 MG/M2 DAILY;
     Route: 042
     Dates: start: 20171009, end: 20171009
  16. DEXAMETHASONE. [Suspect]
     Active Substance: DEXAMETHASONE
     Indication: PLASMA CELL MYELOMA
     Dosage: 20 MILLIGRAM DAILY;
     Route: 065
     Dates: start: 20171010, end: 20171010
  17. CARFILZOMIB [Suspect]
     Active Substance: CARFILZOMIB
     Dosage: 45 MG/M2 DAILY;
     Route: 042
     Dates: start: 20170919, end: 20170919
  18. DEXAMETHASONE. [Suspect]
     Active Substance: DEXAMETHASONE
     Dosage: 20 MILLIGRAM DAILY;
     Route: 065
     Dates: start: 20170905, end: 20170905
  19. CARFILZOMIB [Suspect]
     Active Substance: CARFILZOMIB
     Dosage: 45 MG/M2 DAILY;
     Route: 042
     Dates: start: 20170918, end: 20170918

REACTIONS (1)
  - Pneumonia [Recovered/Resolved]

NARRATIVE: CASE EVENT DATE: 20171011
